FAERS Safety Report 9390297 (Version 2)
Quarter: 2013Q3

REPORT INFORMATION
  Report Type: Spontaneous
  Country: CN (occurrence: CN)
  Receive Date: 20130709
  Receipt Date: 20130715
  Transmission Date: 20140515
  Serious: Yes (Hospitalization, Other)
  Sender: FDA-Public Use
  Company Number: CN-RANBAXY-2013RR-70867

PATIENT
  Age: 51 Year
  Sex: Female

DRUGS (2)
  1. CLARITHROMYCIN [Suspect]
     Indication: HELICOBACTER GASTRITIS
     Dosage: ONE DOSE OF 500MG
     Route: 048
     Dates: start: 20111205, end: 20111205
  2. RABEPRAZOLE [Suspect]
     Indication: HELICOBACTER GASTRITIS
     Dosage: ONE DOSE OF 10MG
     Route: 048
     Dates: start: 20111205, end: 20111205

REACTIONS (3)
  - Dissociative disorder [Recovered/Resolved]
  - Acute psychosis [Recovered/Resolved]
  - Drug interaction [Recovered/Resolved]
